FAERS Safety Report 10188625 (Version 1)
Quarter: 2014Q2

REPORT INFORMATION
  Report Type: Spontaneous
  Country: US (occurrence: US)
  Receive Date: 20140522
  Receipt Date: 20140522
  Transmission Date: 20141212
  Serious: No
  Sender: FDA-Public Use
  Company Number: US-SA-2014SA016956

PATIENT
  Age: 70 Year
  Sex: Female
  Weight: 68 kg

DRUGS (12)
  1. LANTUS SOLOSTAR [Suspect]
     Indication: TYPE 2 DIABETES MELLITUS
     Dosage: DOSE:12 UNIT(S)
     Route: 065
     Dates: start: 20140114
  2. LANTUS SOLOSTAR [Suspect]
     Indication: TYPE 2 DIABETES MELLITUS
     Dosage: DOSE:12 UNIT(S)
     Route: 065
     Dates: start: 20140114
  3. SOLOSTAR [Concomitant]
  4. ALL OTHER THERAPEUTIC PRODUCTS [Concomitant]
  5. LISINOPRIL [Concomitant]
     Indication: BLOOD PRESSURE
  6. METOPROLOL [Concomitant]
  7. METOLAZONE [Concomitant]
     Indication: FLUID RETENTION
  8. AMLODIPINE [Concomitant]
     Indication: BLOOD PRESSURE
  9. PRAVASTATIN [Concomitant]
  10. ASPIRIN [Concomitant]
  11. FISH OIL [Concomitant]
  12. COQ10 [Concomitant]

REACTIONS (5)
  - Rhinorrhoea [Unknown]
  - Ear infection [Unknown]
  - Ear discomfort [Unknown]
  - Visual impairment [Unknown]
  - Blood glucose increased [Unknown]
